FAERS Safety Report 8836472 (Version 1)
Quarter: 2012Q4

REPORT INFORMATION
  Report Type: 
  Country: US (occurrence: US)
  Receive Date: 20121011
  Receipt Date: 20121011
  Transmission Date: 20130627
  Serious: No
  Sender: FDA-Public Use
  Company Number: US-ASTRAZENECA-2012SE77742

PATIENT
  Age: 80 Year
  Sex: Female
  Weight: 100.2 kg

DRUGS (8)
  1. NEXIUM [Suspect]
     Indication: ULCER HAEMORRHAGE
     Route: 048
     Dates: start: 201208
  2. METOPROLOL TARTRATE [Suspect]
     Indication: BLOOD PRESSURE
     Route: 048
  3. LASIX [Concomitant]
  4. COUMADIN [Concomitant]
  5. ALDACTONE [Concomitant]
  6. ALLOPURINOL [Concomitant]
  7. SIMVASTATIN [Concomitant]
  8. NORCO [Concomitant]
     Indication: BACK PAIN

REACTIONS (3)
  - Hepatic cirrhosis [Unknown]
  - Off label use [Unknown]
  - Drug prescribing error [Unknown]
